FAERS Safety Report 6916802-3 (Version None)
Quarter: 2010Q3

REPORT INFORMATION
  Report Type: 
  Country: None (occurrence: None)
  Receive Date: 20100810
  Receipt Date: 20100729
  Transmission Date: 20110219
  Serious: Yes (Hospitalization)
  Sender: FDA-Public Use
  Company Number: CA-PFIZER INC-2010089624

PATIENT
  Age: 51 Year
  Sex: Male
  Weight: 87 kg

DRUGS (4)
  1. SUNITINIB MALATE [Suspect]
     Indication: METASTATIC RENAL CELL CARCINOMA
     Dosage: 50 MG, 1X/DAY
     Route: 048
     Dates: start: 20090706
  2. AMLODIPINE [Concomitant]
     Dosage: UNK
     Dates: start: 20100615, end: 20100713
  3. RABEPRAZOLE SODIUM [Concomitant]
     Dosage: UNK
     Dates: start: 20100615
  4. OXYCODONE [Concomitant]
     Dosage: UNK
     Dates: start: 20090703

REACTIONS (2)
  - CHOLECYSTITIS ACUTE [None]
  - CHOLELITHIASIS [None]
